FAERS Safety Report 5750882-6 (Version None)
Quarter: 2008Q2

REPORT INFORMATION
  Report Type: 
  Country: None (occurrence: None)
  Receive Date: 20080528
  Receipt Date: 20080520
  Transmission Date: 20081010
  Serious: Yes (Other)
  Sender: FDA-Public Use
  Company Number: US-KINGPHARMUSA00001-K200800577

PATIENT

DRUGS (5)
  1. ALTACE [Suspect]
     Indication: HYPERTENSION
     Route: 048
     Dates: start: 20071030
  2. FELODIPINE [Suspect]
     Indication: HYPERTENSION
     Dosage: UNK, UNK
     Route: 048
     Dates: start: 20071030
  3. ALENDRONATE SODIUM [Concomitant]
     Indication: OSTEOPOROSIS
     Dosage: UNK, QW
     Route: 048
     Dates: start: 19980101
  4. COLECALCIFEROL [Concomitant]
     Indication: OSTEOPOROSIS
     Dosage: UNK, QW
     Route: 048
     Dates: start: 19980101
  5. CALCIUM [Concomitant]
     Indication: OSTEOPOROSIS
     Route: 048
     Dates: start: 19980101

REACTIONS (2)
  - ANXIETY [None]
  - NIGHTMARE [None]
